FAERS Safety Report 8812388 (Version 2)
Quarter: 2013Q2

REPORT INFORMATION
  Report Type: Other
  Country: DE (occurrence: DE)
  Receive Date: 20120927
  Receipt Date: 20130503
  Transmission Date: 20140414
  Serious: Yes (Hospitalization)
  Sender: FDA-Public Use
  Company Number: DE-WATSON-2012-16427

PATIENT
  Age: 82 Year
  Sex: Female
  Weight: 67 kg

DRUGS (12)
  1. METFORMIN HYDROCHLORIDE (UNKNOWN) [Suspect]
     Indication: TYPE 2 DIABETES MELLITUS
     Dosage: 2.5 G GRAM(S),1 DAY
     Route: 048
     Dates: start: 20100521
  2. METFORMIN HYDROCHLORIDE (UNKNOWN) [Suspect]
     Dosage: DAILY DOSE: 2 DF DOSAGE FORM EVERY DAY
     Route: 065
     Dates: start: 20100521
  3. METFORMIN HYDROCHLORIDE (UNKNOWN) [Suspect]
     Dosage: 1000 ORAL MG MILLGRAM(S) EVERY DAYS, 500MG MILLGRAM(S) 2 1DAY
     Route: 048
     Dates: start: 20120521
  4. JANUVIA [Concomitant]
     Indication: PRODUCT USED FOR UNKNOWN INDICATION
     Dosage: DAILY DOSE: 1 DF DOSAGE FORM EVERY DAY, 214DF DOSAGE FORM
     Route: 065
     Dates: start: 20100526
  5. JANUVIA [Concomitant]
     Dosage: 100MG MILLGRAM(S)
     Route: 048
     Dates: start: 20120526
  6. ASS [Concomitant]
     Indication: PRODUCT USED FOR UNKNOWN INDICATION
     Dosage: DAILY DOSE: 100 ORALMG MILLGRAM(S) EVERY DAYS, 100MG MILLGRAM(S) EVERY DAYS
     Route: 048
  7. CARVEDILOL [Concomitant]
     Indication: PRODUCT USED FOR UNKNOWN INDICATION
     Dosage: DAILY DOSE: 12.5 ORAL MG MILLGRAM(S) EVERY DAYS; 6.25MG MILLGRAM(S)
     Route: 048
  8. AMLODIPIN                          /00972401/ [Concomitant]
     Indication: PRODUCT USED FOR UNKNOWN INDICATION
     Dosage: 1-0-0.5; 10MG MILLGRAM(S)
     Route: 048
  9. TORASEMID [Concomitant]
     Indication: PRODUCT USED FOR UNKNOWN INDICATION
     Dosage: 1-0-0.5; 10MG MILLGRAM(S)
     Route: 048
  10. RAMIPRIL [Concomitant]
     Indication: PRODUCT USED FOR UNKNOWN INDICATION
     Dosage: 1-0-1; 10MG MILLGRAM(S)
     Route: 048
  11. CLONIDIN [Concomitant]
     Indication: PRODUCT USED FOR UNKNOWN INDICATION
     Dosage: 1-0-1;75MG MILLGRAM(S)
     Route: 048
  12. CLONIDIN [Concomitant]
     Indication: PRODUCT USED FOR UNKNOWN INDICATION
     Dosage: 1-0-1 10MG MILLGRAM(S)
     Route: 048

REACTIONS (2)
  - Renal failure acute [Recovered/Resolved]
  - Lactic acidosis [Recovered/Resolved]
